FAERS Safety Report 15330128 (Version 4)
Quarter: 2018Q4

REPORT INFORMATION
  Report Type: Report from Study
  Country: BR (occurrence: BR)
  Receive Date: 20180829
  Receipt Date: 20181122
  Transmission Date: 20190204
  Serious: Yes (Death, Other)
  Sender: FDA-Public Use
  Company Number: PHHY2016BR005829

PATIENT
  Age: 52 Year
  Sex: Female
  Weight: 54 kg

DRUGS (15)
  1. AFINITOR [Suspect]
     Active Substance: EVEROLIMUS
     Dosage: 2 DF (5 MG), QD
     Route: 048
  2. AFINITOR [Suspect]
     Active Substance: EVEROLIMUS
     Dosage: 2 DF (5 MG), QD
     Route: 048
  3. SANDOSTATIN LAR DEPOT [Suspect]
     Active Substance: OCTREOTIDE ACETATE
     Dosage: 30 MG, QMO (EVERY 28 DAYS)
     Route: 030
  4. SANDOSTATIN LAR DEPOT [Suspect]
     Active Substance: OCTREOTIDE ACETATE
     Dosage: 60 MG, QMO (EVERY 28 DAYS) (TWO AMPOULES OF 30 MG)
     Route: 030
     Dates: start: 201603
  5. SANDOSTATIN LAR DEPOT [Suspect]
     Active Substance: OCTREOTIDE ACETATE
     Dosage: 60 MG, QMO (EVERY 28 DAYS) (TWO AMPOULES OF 30 MG)
     Route: 030
     Dates: start: 201705, end: 20180420
  6. PREDNISONE. [Concomitant]
     Active Substance: PREDNISONE
     Indication: CONTRAST MEDIA ALLERGY
     Route: 065
  7. SANDOSTATIN LAR DEPOT [Suspect]
     Active Substance: OCTREOTIDE ACETATE
     Dosage: 70 MG, QMO (EVERY 28 DAYS)
     Route: 030
     Dates: start: 2017
  8. SANDOSTATIN LAR DEPOT [Suspect]
     Active Substance: OCTREOTIDE ACETATE
     Dosage: 40 MG, QMO (EVERY 28 DAYS)
     Route: 030
  9. SANDOSTATIN LAR DEPOT [Suspect]
     Active Substance: OCTREOTIDE ACETATE
     Dosage: 20 MG, QMO (EVERY 28 DAYS)
     Route: 030
  10. AFINITOR [Suspect]
     Active Substance: EVEROLIMUS
     Indication: NEUROENDOCRINE TUMOUR
     Dosage: 2 DF (5 MG), QD
     Route: 048
     Dates: start: 201405
  11. SANDOSTATIN LAR DEPOT [Suspect]
     Active Substance: OCTREOTIDE ACETATE
     Indication: NEUROENDOCRINE TUMOUR
     Dosage: 10 MG, QMO (EVERY 28 DAYS)
     Route: 030
     Dates: start: 201001
  12. AFINITOR [Suspect]
     Active Substance: EVEROLIMUS
     Dosage: 2 DF (5 MG), QD
     Route: 048
     Dates: end: 20180722
  13. SANDOSTATIN LAR DEPOT [Suspect]
     Active Substance: OCTREOTIDE ACETATE
     Dosage: 50 MG (1 AMPOULE OF 30 MG AND 1 AMPOULE OF 20 MG), QMO (EVERY 28 DAYS)
     Route: 030
  14. AFINITOR [Suspect]
     Active Substance: EVEROLIMUS
     Dosage: 2 DF (5 MG), QD
     Route: 048
  15. ENALAPRIL [Concomitant]
     Active Substance: ENALAPRIL
     Indication: HYPERTENSION
     Dosage: 1 DF, QD
     Route: 048

REACTIONS (19)
  - Neuroendocrine tumour [Recovered/Resolved with Sequelae]
  - Diabetes mellitus [Unknown]
  - Pain in extremity [Recovered/Resolved]
  - Diarrhoea [Unknown]
  - Incorrect dose administered [Not Recovered/Not Resolved]
  - Back pain [Not Recovered/Not Resolved]
  - Erythema [Unknown]
  - Anaemia [Recovering/Resolving]
  - Heart rate increased [Unknown]
  - Skin odour abnormal [Recovering/Resolving]
  - Weight decreased [Recovering/Resolving]
  - Pruritus [Unknown]
  - Pain in extremity [Not Recovered/Not Resolved]
  - Peripheral swelling [Not Recovered/Not Resolved]
  - Hypophagia [Unknown]
  - Malignant neoplasm progression [Recovered/Resolved with Sequelae]
  - Nausea [Recovering/Resolving]
  - Malaise [Recovering/Resolving]
  - Hypotension [Fatal]

NARRATIVE: CASE EVENT DATE: 201407
